FAERS Safety Report 9472360 (Version 3)
Quarter: 2013Q4

REPORT INFORMATION
  Report Type: Spontaneous
  Country: US (occurrence: US)
  Receive Date: 20130823
  Receipt Date: 20131017
  Transmission Date: 20140711
  Serious: Yes (Hospitalization)
  Sender: FDA-Public Use
  Company Number: US-JNJFOC-20130807772

PATIENT
  Age: 40 Year
  Sex: Male
  Weight: 77.11 kg

DRUGS (3)
  1. STELARA [Suspect]
     Indication: PSORIATIC ARTHROPATHY
     Route: 030
     Dates: start: 20130903
  2. STELARA [Suspect]
     Indication: PSORIATIC ARTHROPATHY
     Route: 030
     Dates: start: 20130910
  3. STELARA [Suspect]
     Indication: PSORIATIC ARTHROPATHY
     Route: 030
     Dates: start: 20130703

REACTIONS (3)
  - Cellulitis [Recovered/Resolved]
  - Incorrect route of drug administration [Unknown]
  - Psoriasis [Unknown]
